FAERS Safety Report 21477703 (Version 1)
Quarter: 2022Q4

REPORT INFORMATION
  Report Type: Report from Study
  Country: CA (occurrence: CA)
  Receive Date: 20221019
  Receipt Date: 20221019
  Transmission Date: 20230112
  Serious: Yes (Other)
  Sender: FDA-Public Use
  Company Number: CA-002147023-NVSC2020CA210681

PATIENT

DRUGS (2)
  1. DICLOFENAC [Suspect]
     Active Substance: DICLOFENAC
     Indication: Spinal osteoarthritis
     Dosage: 50 MG
     Route: 065
     Dates: start: 2006, end: 2016
  2. NAPROXEN [Concomitant]
     Active Substance: NAPROXEN
     Indication: Product used for unknown indication
     Dosage: UNK, BID
     Route: 065
     Dates: start: 2016

REACTIONS (9)
  - Ankylosing spondylitis [Unknown]
  - Fatigue [Unknown]
  - Dysstasia [Unknown]
  - Spinal disorder [Unknown]
  - Musculoskeletal stiffness [Unknown]
  - Arthritis [Unknown]
  - Skin disorder [Unknown]
  - Discomfort [Unknown]
  - Spinal osteoarthritis [Unknown]
